FAERS Safety Report 9217956 (Version 1)
Quarter: 2013Q2

REPORT INFORMATION
  Report Type: Spontaneous
  Country: IT (occurrence: IT)
  Receive Date: 20130408
  Receipt Date: 20130408
  Transmission Date: 20140414
  Serious: Yes (Other)
  Sender: FDA-Public Use
  Company Number: PHHY2013IT033095

PATIENT
  Age: 49 Year
  Sex: Male

DRUGS (2)
  1. PREDNISONE [Suspect]
     Indication: INTERSTITIAL LUNG DISEASE
  2. CICLOSPORIN [Suspect]
     Indication: INTERSTITIAL LUNG DISEASE

REACTIONS (5)
  - Pulmonary arterial hypertension [Unknown]
  - Interstitial lung disease [Unknown]
  - Dyspnoea [Unknown]
  - Blood creatinine increased [Unknown]
  - Drug ineffective [Unknown]
